FAERS Safety Report 5468624-0 (Version None)
Quarter: 2007Q3

REPORT INFORMATION
  Report Type: 
  Country: None (occurrence: None)
  Receive Date: 20070921
  Receipt Date: 20070913
  Transmission Date: 20080115
  Serious: Yes (Life-Threatening, Hospitalization)
  Sender: FDA-Public Use
  Company Number: 2007-03115

PATIENT
  Age: 70 Year
  Sex: Male
  Weight: 68 kg

DRUGS (2)
  1. VELCADE [Suspect]
     Indication: PLASMACYTOMA
     Dosage: INTRAVENOUS
     Route: 042
     Dates: start: 20070706, end: 20070706
  2. NOVALGIN (METAMIZOLE SODIUM) [Suspect]
     Indication: PAIN
     Dosage: 40.00 ML, ORAL
     Route: 048

REACTIONS (4)
  - GASTRITIS EROSIVE [None]
  - GASTRITIS HAEMORRHAGIC [None]
  - MELAENA [None]
  - PLASMACYTOMA [None]
